FAERS Safety Report 11407686 (Version 3)
Quarter: 2015Q3

REPORT INFORMATION
  Report Type: Spontaneous
  Country: US (occurrence: US)
  Receive Date: 20150821
  Receipt Date: 20150909
  Transmission Date: 20151125
  Serious: Yes (Disabling)
  Sender: FDA-Public Use
  Company Number: US-ALLERGAN-1516480US

PATIENT
  Age: 55 Year
  Sex: Female

DRUGS (1)
  1. LATISSE [Suspect]
     Active Substance: BIMATOPROST
     Indication: GROWTH OF EYELASHES
     Dosage: 2 GTT, QHS
     Route: 061
     Dates: end: 201507

REACTIONS (7)
  - Madarosis [Recovered/Resolved]
  - Growth of eyelashes [Recovered/Resolved]
  - Attention deficit/hyperactivity disorder [Not Recovered/Not Resolved]
  - Eye irritation [Unknown]
  - Disability [Not Recovered/Not Resolved]
  - Skin disorder [Not Recovered/Not Resolved]
  - Inappropriate schedule of drug administration [Unknown]
